FAERS Safety Report 18431794 (Version 1)
Quarter: 2020Q4

REPORT INFORMATION
  Report Type: Spontaneous
  Country: US (occurrence: US)
  Receive Date: 20201027
  Receipt Date: 20201027
  Transmission Date: 20210114
  Serious: No
  Sender: FDA-Public Use
  Company Number: US-TEVA-2020-US-1839257

PATIENT
  Age: 30 Year
  Sex: Male
  Weight: 68.04 kg

DRUGS (3)
  1. AJOVY [Suspect]
     Active Substance: FREMANEZUMAB-VFRM
  2. AJOVY [Suspect]
     Active Substance: FREMANEZUMAB-VFRM
     Route: 065
     Dates: start: 20200808
  3. RIZATRIPTAN. [Concomitant]
     Active Substance: RIZATRIPTAN
     Indication: MIGRAINE
     Route: 065

REACTIONS (4)
  - Taste disorder [Unknown]
  - Product dose omission issue [Unknown]
  - Parosmia [Unknown]
  - Tongue disorder [Unknown]

NARRATIVE: CASE EVENT DATE: 202008
